FAERS Safety Report 23595250 (Version 1)
Quarter: 2024Q1

REPORT INFORMATION
  Report Type: Spontaneous
  Country: US (occurrence: US)
  Receive Date: 20240305
  Receipt Date: 20240305
  Transmission Date: 20240410
  Serious: Yes (Other)
  Sender: FDA-Public Use
  Company Number: US-ASTELLAS-2024US006510

PATIENT
  Sex: Male

DRUGS (8)
  1. XTANDI [Suspect]
     Active Substance: ENZALUTAMIDE
     Indication: Prostate cancer
     Route: 065
  2. XTANDI [Suspect]
     Active Substance: ENZALUTAMIDE
     Route: 065
  3. TALZENNA [Suspect]
     Active Substance: TALAZOPARIB TOSYLATE
     Indication: Prostate cancer
     Dosage: 0.25 MG, TWICE DAILY
     Route: 048
     Dates: start: 202312, end: 20240221
  4. ABIRATERONE [Suspect]
     Active Substance: ABIRATERONE
     Indication: Product used for unknown indication
     Dosage: 250 MG, ONCE DAILY (MORNING)
     Route: 065
     Dates: start: 202308
  5. LISINOPRIL [Suspect]
     Active Substance: LISINOPRIL
     Indication: Product used for unknown indication
     Route: 065
  6. LISINOPRIL [Suspect]
     Active Substance: LISINOPRIL
     Dosage: 20 MG, UNKNOWN FREQ. (NOT TAKING LISINOPRIL RIGHT NOW)
     Route: 065
     Dates: start: 202105
  7. CRESTOR [Concomitant]
     Active Substance: ROSUVASTATIN CALCIUM
     Indication: Product used for unknown indication
     Dosage: 5 MG, ONCE DAILY (BEEN TAKING IT FOR 15 YEARS)
     Route: 065
  8. PREDNISONE [Concomitant]
     Active Substance: PREDNISONE
     Indication: Product used for unknown indication
     Dosage: UNK UNK, UNKNOWN FREQ.
     Route: 065

REACTIONS (10)
  - Red blood cell count decreased [Unknown]
  - Platelet count decreased [Unknown]
  - White blood cell count decreased [Unknown]
  - Haemoglobin decreased [Unknown]
  - Prostatic haemorrhage [Unknown]
  - Decreased appetite [Recovered/Resolved]
  - Weight decreased [Unknown]
  - Ageusia [Recovered/Resolved]
  - Dyspnoea [Unknown]
  - Hypotension [Unknown]

NARRATIVE: CASE EVENT DATE: 20230101
